FAERS Safety Report 15291381 (Version 1)
Quarter: 2018Q3

REPORT INFORMATION
  Report Type: Spontaneous
  Country: FR (occurrence: FR)
  Receive Date: 20180817
  Receipt Date: 20180817
  Transmission Date: 20181010
  Serious: Yes (Death)
  Sender: FDA-Public Use
  Company Number: FR-TEVA-2018-FR-942752

PATIENT
  Age: 62 Year
  Sex: Male
  Weight: 110 kg

DRUGS (1)
  1. TRAMADOL BASE [Suspect]
     Active Substance: TRAMADOL
     Indication: PAIN
     Dosage: NOT INFORMED
     Route: 048
     Dates: start: 201807, end: 201807

REACTIONS (2)
  - Cardiac arrest [Fatal]
  - Decompression sickness [Fatal]

NARRATIVE: CASE EVENT DATE: 201807
